FAERS Safety Report 5097299-8 (Version None)
Quarter: 2006Q3

REPORT INFORMATION
  Report Type: 
  Country: None (occurrence: None)
  Receive Date: 20060906
  Receipt Date: 20060804
  Transmission Date: 20061208
  Serious: Yes (Other)
  Sender: FDA-Public Use
  Company Number: ZA-ROCHE-458356

PATIENT
  Age: 23 Year
  Sex: Female
  Weight: 55.7 kg

DRUGS (2)
  1. ROCEPHIN [Suspect]
     Indication: PROPHYLAXIS
     Dosage: INJECTED SLOWLY.
     Route: 042
     Dates: start: 20060619, end: 20060619
  2. SYNTOCINON [Concomitant]
     Dosage: DOSAGE REGIMEN: FIVE UNITS INTRAVENOUS IMMEDIATELY AND 15 UNITS IN INFUSION.
     Route: 042

REACTIONS (4)
  - HYPERSENSITIVITY [None]
  - HYPOTENSION [None]
  - RASH [None]
  - TACHYCARDIA [None]
